FAERS Safety Report 8588112-2 (Version None)
Quarter: 2012Q3

REPORT INFORMATION
  Report Type: 
  Country: None (occurrence: None)
  Receive Date: 20120813
  Receipt Date: 20120806
  Transmission Date: 20120928
  Serious: No
  Sender: FDA-Public Use
  Company Number: US-PFIZER INC-2012191943

PATIENT
  Age: 46 Year
  Sex: Female

DRUGS (13)
  1. IRON [Concomitant]
     Dosage: UNK, 65 QD
  2. PROZAC [Concomitant]
     Dosage: UNK, 40 QD
  3. SUPER VITAMIN B COMPLEX [Concomitant]
     Dosage: UNK
  4. FLONASE [Concomitant]
     Dosage: UNK
  5. OXYCODONE [Concomitant]
     Dosage: 10 Q 60
  6. SEROQUEL [Concomitant]
     Dosage: UNK, 100 QHS
  7. LYRICA [Suspect]
     Dosage: UNK
  8. ZOVIRAX [Concomitant]
     Dosage: UNK, 200 QD
  9. LISINOPRIL [Concomitant]
     Dosage: UNK, 40 BID
  10. ALLEGRA [Concomitant]
     Dosage: UNK, 180 QD
  11. BUSPAR [Concomitant]
     Dosage: 5 MG, 2X/DAY
  12. AMBIEN [Concomitant]
     Dosage: UNK, 10 HS, PRN
  13. REGLAN [Concomitant]
     Dosage: 5 MG, 2X/DAY

REACTIONS (6)
  - HYPONATRAEMIA [None]
  - WEIGHT INCREASED [None]
  - PARAESTHESIA [None]
  - PAIN [None]
  - HYPOAESTHESIA [None]
  - GASTROOESOPHAGEAL REFLUX DISEASE [None]
